FAERS Safety Report 5382062-0 (Version None)
Quarter: 2007Q3

REPORT INFORMATION
  Report Type: 
  Country: None (occurrence: None)
  Receive Date: 20070709
  Receipt Date: 20070629
  Transmission Date: 20080115
  Serious: Yes (Hospitalization)
  Sender: FDA-Public Use
  Company Number: US-ASTRAZENECA-2007UW15575

PATIENT
  Age: 88 Year
  Sex: Female

DRUGS (1)
  1. SEROQUEL [Suspect]
     Indication: VASCULAR DEMENTIA
     Route: 048
     Dates: start: 20070517

REACTIONS (5)
  - FALL [None]
  - HAEMORRHAGE INTRACRANIAL [None]
  - INCREASED APPETITE [None]
  - SEDATION [None]
  - SOMNOLENCE [None]
